FAERS Safety Report 10247704 (Version 1)
Quarter: 2014Q2

REPORT INFORMATION
  Report Type: Spontaneous
  Country: FR (occurrence: FR)
  Receive Date: 20140619
  Receipt Date: 20140619
  Transmission Date: 20141212
  Serious: Yes (Hospitalization)
  Sender: FDA-Public Use
  Company Number: FR-ASTRAZENECA-2014SE44249

PATIENT
  Age: 25039 Day
  Sex: Male

DRUGS (6)
  1. ATACAND [Suspect]
     Dosage: DAILY
     Route: 048
     Dates: end: 20140304
  2. NORVIR [Concomitant]
  3. PREZISTA [Concomitant]
  4. KIVEXA [Concomitant]
     Indication: HIV TEST POSITIVE
  5. CRESTOR [Concomitant]
  6. ASPEGIC [Concomitant]

REACTIONS (3)
  - Presyncope [Recovered/Resolved]
  - Vitreous floaters [Recovered/Resolved]
  - Hypotension [Recovered/Resolved]
